FAERS Safety Report 5903127-8 (Version None)
Quarter: 2008Q3

REPORT INFORMATION
  Report Type: 
  Country: None (occurrence: None)
  Receive Date: 20080930
  Receipt Date: 20080929
  Transmission Date: 20090109
  Serious: Yes (Hospitalization)
  Sender: FDA-Public Use
  Company Number: PHHO1999IT03924

PATIENT
  Sex: Male
  Weight: 72 kg

DRUGS (3)
  1. PLACEBO PLACEBO [Suspect]
     Route: 042
     Dates: start: 19990114
  2. AZATHIOPRINE [Suspect]
     Dates: start: 19990114
  3. NEORAL [Suspect]

REACTIONS (1)
  - ENTEROCOLITIS [None]
